FAERS Safety Report 8267745-7 (Version None)
Quarter: 2012Q2

REPORT INFORMATION
  Report Type: 
  Country: None (occurrence: None)
  Receive Date: 20120409
  Receipt Date: 20120330
  Transmission Date: 20120825
  Serious: Yes (Hospitalization, Other)
  Sender: FDA-Public Use
  Company Number: US-BAYER-2011-094332

PATIENT
  Age: 27 Year
  Sex: Female
  Weight: 61.224 kg

DRUGS (7)
  1. ZYRTEC [Concomitant]
  2. YASMIN [Suspect]
     Indication: CONTRACEPTION
     Dosage: UNK
     Route: 048
     Dates: start: 20030806, end: 20031016
  3. TYLENOL (CAPLET) [Concomitant]
  4. PROTONIX [Concomitant]
  5. PREVACID [Concomitant]
  6. ZYRTEC-D 12 HOUR [Concomitant]
  7. MULTI-VITAMIN [Concomitant]

REACTIONS (6)
  - PULMONARY EMBOLISM [None]
  - OEDEMA PERIPHERAL [None]
  - PAIN IN EXTREMITY [None]
  - DEEP VEIN THROMBOSIS [None]
  - LUNG DISORDER [None]
  - PAIN [None]
